FAERS Safety Report 6506611-1 (Version None)
Quarter: 2009Q4

REPORT INFORMATION
  Report Type: 
  Country: None (occurrence: None)
  Receive Date: 20091216
  Receipt Date: 20091201
  Transmission Date: 20100525
  Serious: Yes (Other)
  Sender: FDA-Public Use
  Company Number: AUR-APL-2009-01523

PATIENT
  Sex: Female

DRUGS (4)
  1. METOPROLOL TARTRATE [Suspect]
  2. NORVASC [Suspect]
  3. CRESTOR [Suspect]
  4. LIPITOR [Suspect]

REACTIONS (5)
  - HEART RATE INCREASED [None]
  - HEART RATE IRREGULAR [None]
  - MUSCLE SPASMS [None]
  - MUSCLE TIGHTNESS [None]
  - TREMOR [None]
